FAERS Safety Report 6151956-0 (Version None)
Quarter: 2009Q2

REPORT INFORMATION
  Report Type: 
  Country: None (occurrence: None)
  Receive Date: 20090410
  Receipt Date: 20090331
  Transmission Date: 20091009
  Serious: Yes (Hospitalization, Other)
  Sender: FDA-Public Use
  Company Number: IE-ABBOTT-08P-229-0460422-00

PATIENT
  Sex: Female

DRUGS (1)
  1. KALETRA [Suspect]
     Indication: HIV INFECTION
     Dates: start: 20040901

REACTIONS (2)
  - ASCITES [None]
  - TRANSAMINASES INCREASED [None]
